FAERS Safety Report 6772224-X (Version None)
Quarter: 2010Q2

REPORT INFORMATION
  Report Type: 
  Country: None (occurrence: None)
  Receive Date: 20100616
  Receipt Date: 20100604
  Transmission Date: 20101027
  Serious: No
  Sender: FDA-Public Use
  Company Number: US-B.I. PHARMACEUTICALS,INC./RIDGEFIELD-2010-BP-06402BP

PATIENT

DRUGS (3)
  1. VIRAMUNE [Suspect]
     Indication: HIV TEST POSITIVE
  2. VIREAD [Concomitant]
     Indication: HIV TEST POSITIVE
  3. LAMIVUDINE (EPIVIR HBV) [Concomitant]
     Indication: HIV TEST POSITIVE

REACTIONS (2)
  - AMNESIA [None]
  - SLEEP APNOEA SYNDROME [None]
